FAERS Safety Report 10675855 (Version 1)
Quarter: 2014Q4

REPORT INFORMATION
  Report Type: Report from Study
  Country: NL (occurrence: NL)
  Receive Date: 20141225
  Receipt Date: 20141225
  Transmission Date: 20150529
  Serious: Yes (Other)
  Sender: FDA-Public Use
  Company Number: NL-AMGEN-NLDSL2014100072

PATIENT
  Age: 60 Year
  Sex: Male

DRUGS (1)
  1. ARANESP [Suspect]
     Active Substance: DARBEPOETIN ALFA
     Indication: PRODUCT USED FOR UNKNOWN INDICATION
     Dosage: 60 MUG, Q2WK
     Route: 058
     Dates: start: 20141113, end: 20141127

REACTIONS (4)
  - Swelling [Unknown]
  - Pharyngeal oedema [Unknown]
  - Dysphagia [Unknown]
  - Swollen tongue [Unknown]

NARRATIVE: CASE EVENT DATE: 201411
